FAERS Safety Report 10919965 (Version 1)
Quarter: 2015Q1

REPORT INFORMATION
  Report Type: Spontaneous
  Country: US (occurrence: US)
  Receive Date: 20150317
  Receipt Date: 20150317
  Transmission Date: 20150721
  Serious: Yes (Other)
  Sender: FDA-Public Use
  Company Number: US-JNJFOC-20150218647

PATIENT

DRUGS (1)
  1. TYLENOL EXTRA STRENGTH [Suspect]
     Active Substance: ACETAMINOPHEN
     Indication: PRODUCT USED FOR UNKNOWN INDICATION
     Dosage: TOTAL DOSE OF 50 GM INGESTED
     Route: 048
     Dates: start: 20050211

REACTIONS (3)
  - Intentional overdose [Unknown]
  - Vomiting [Unknown]
  - Exposure via ingestion [None]

NARRATIVE: CASE EVENT DATE: 20050211
